FAERS Safety Report 21282811 (Version 1)
Quarter: 2022Q3

REPORT INFORMATION
  Report Type: Spontaneous
  Country: US (occurrence: None)
  Receive Date: 20220901
  Receipt Date: 20220901
  Transmission Date: 20221027
  Serious: Yes (Other)
  Sender: FDA-Public Use
  Company Number: None

PATIENT
  Age: 65 Year
  Sex: Female
  Weight: 57 kg

DRUGS (3)
  1. LIDOCAINE HYDROCHLORIDE [Suspect]
     Active Substance: LIDOCAINE HYDROCHLORIDE
     Indication: Local anaesthesia
     Dosage: FREQUENCY : ONCE;?OTHER ROUTE : INTRACAMERAL;?
     Route: 050
     Dates: start: 20220901, end: 20220901
  2. LIDOCAINE HYDROCHLORIDE [Suspect]
     Active Substance: LIDOCAINE HYDROCHLORIDE
     Indication: Cataract operation
  3. epinephrine 0.3 mg in 500 mL Balanced Salt Solution [Concomitant]
     Dates: start: 20220901, end: 20220901

REACTIONS (3)
  - Ocular procedural complication [None]
  - Corneal oedema [None]
  - Intra-ocular injection complication [None]

NARRATIVE: CASE EVENT DATE: 20220901
